FAERS Safety Report 17442431 (Version 2)
Quarter: 2020Q1

REPORT INFORMATION
  Report Type: Report from Study
  Country: US (occurrence: US)
  Receive Date: 20200220
  Receipt Date: 20200326
  Transmission Date: 20200409
  Serious: No
  Sender: FDA-Public Use
  Company Number: NVSC2020US048069

PATIENT
  Sex: Female

DRUGS (1)
  1. PIQRAY [Suspect]
     Active Substance: ALPELISIB
     Indication: PRODUCT USED FOR UNKNOWN INDICATION
     Route: 048

REACTIONS (6)
  - Product availability issue [Unknown]
  - Abdominal discomfort [Unknown]
  - Dehydration [Unknown]
  - Oral pain [Unknown]
  - Diarrhoea [Unknown]
  - Infection [Unknown]
